FAERS Safety Report 6717801-7 (Version None)
Quarter: 2010Q2

REPORT INFORMATION
  Report Type: 
  Country: None (occurrence: None)
  Receive Date: 20100510
  Receipt Date: 20100503
  Transmission Date: 20101027
  Serious: Yes (Other)
  Sender: FDA-Public Use
  Company Number: US-PFIZER INC-2010055543

PATIENT
  Age: 33 Year
  Sex: Female
  Weight: 77.098 kg

DRUGS (3)
  1. ZOLOFT [Suspect]
     Dosage: 50 MG, 1X/DAY
     Route: 048
  2. MINOCYCLINE HYDROCHLORIDE [Interacting]
     Indication: ACNE
     Dosage: 65 MG, 1X/DAY
     Route: 048
     Dates: start: 20100312
  3. ADDERALL 30 [Concomitant]
     Dosage: UNK

REACTIONS (9)
  - ERYTHEMA [None]
  - GASTROENTERITIS VIRAL [None]
  - HEADACHE [None]
  - MUSCLE TIGHTNESS [None]
  - MUSCULOSKELETAL PAIN [None]
  - NECK PAIN [None]
  - OEDEMA PERIPHERAL [None]
  - POTENTIATING DRUG INTERACTION [None]
  - SUNBURN [None]
